FAERS Safety Report 17785991 (Version 5)
Quarter: 2020Q2

REPORT INFORMATION
  Report Type: Spontaneous
  Country: US (occurrence: US)
  Receive Date: 20200513
  Receipt Date: 20200624
  Transmission Date: 20200714
  Serious: No
  Sender: FDA-Public Use
  Company Number: US-BLUEPRINT MEDICINES CORPORATION-SP-US-2020-000556

PATIENT
  Sex: Female

DRUGS (1)
  1. AYVAKIT [Suspect]
     Active Substance: AVAPRITINIB
     Indication: GASTROINTESTINAL STROMAL TUMOUR
     Route: 048
     Dates: start: 20200425

REACTIONS (10)
  - Nausea [Recovered/Resolved]
  - Haemoglobin decreased [Unknown]
  - Lacrimation increased [Unknown]
  - Oedema peripheral [Unknown]
  - Vomiting [Unknown]
  - Disease progression [Unknown]
  - Depressed mood [Unknown]
  - Eyelid oedema [Unknown]
  - Abdominal pain upper [Unknown]
  - Insomnia [Unknown]
